FAERS Safety Report 11723718 (Version 1)
Quarter: 2015Q4

REPORT INFORMATION
  Report Type: Spontaneous
  Country: US (occurrence: US)
  Receive Date: 20151111
  Receipt Date: 20151111
  Transmission Date: 20160304
  Serious: No
  Sender: FDA-Public Use
  Company Number: US-PERRIGO-14US011556

PATIENT
  Age: 33 Year
  Sex: Male
  Weight: 117.91 kg

DRUGS (4)
  1. NICOTINE POLACRILEX [Suspect]
     Active Substance: NICOTINE
     Indication: SMOKING CESSATION THERAPY
     Dosage: 4 MG, SINGLE
     Route: 002
     Dates: start: 20141118, end: 20141118
  2. ANXIOLYTICS [Concomitant]
     Active Substance: UNSPECIFIED INGREDIENT
     Indication: ANXIETY
     Dosage: UNK
     Route: 048
  3. MULTIVITAMIN                       /07504101/ [Concomitant]
     Active Substance: VITAMINS
     Indication: VITAMIN SUPPLEMENTATION
     Dosage: UNK
     Route: 048
  4. NICOTINE POLACRILEX [Suspect]
     Active Substance: NICOTINE
     Dosage: 1/2 PIECE, SINGLE
     Route: 002
     Dates: start: 20141119, end: 20141119

REACTIONS (4)
  - Nausea [Recovered/Resolved]
  - Wrong technique in product usage process [Recovered/Resolved]
  - Abdominal pain upper [Recovered/Resolved]
  - Incorrect dose administered [Recovered/Resolved]

NARRATIVE: CASE EVENT DATE: 20141118
